FAERS Safety Report 8147150-4 (Version None)
Quarter: 2012Q1

REPORT INFORMATION
  Report Type: 
  Country: None (occurrence: None)
  Receive Date: 20120218
  Receipt Date: 20110118
  Transmission Date: 20120608
  Serious: No
  Sender: FDA-Public Use
  Company Number: US-ALLERGAN-1100767US

PATIENT
  Sex: Female

DRUGS (3)
  1. BOTOX COSMETIC [Suspect]
     Indication: SKIN WRINKLING
     Dosage: UNK
  2. BOTOX COSMETIC [Suspect]
     Dosage: UNK
     Dates: start: 20030101, end: 20030101
  3. BOTOX COSMETIC [Suspect]
     Dosage: UNK
     Dates: start: 20010101, end: 20010101

REACTIONS (1)
  - EYELID PTOSIS [None]
